FAERS Safety Report 24185292 (Version 1)
Quarter: 2024Q3

REPORT INFORMATION
  Report Type: Spontaneous
  Country: US (occurrence: US)
  Receive Date: 20240807
  Receipt Date: 20240807
  Transmission Date: 20241016
  Serious: No
  Sender: GLENMARK
  Company Number: US-GLENMARK PHARMACEUTICALS-2024GMK091696

PATIENT

DRUGS (1)
  1. RYALTRIS [Suspect]
     Active Substance: MOMETASONE FUROATE MONOHYDRATE\OLOPATADINE HYDROCHLORIDE
     Indication: Hypersensitivity
     Dosage: BID (2 SPRAYS IN EACH NOSTRIL TWICE A DAY (MORNING AND NIGHTTIME)
     Route: 045

REACTIONS (3)
  - Product administration interrupted [Unknown]
  - Product use in unapproved indication [Unknown]
  - Device delivery system issue [Unknown]
